FAERS Safety Report 8554456-3 (Version None)
Quarter: 2012Q3

REPORT INFORMATION
  Report Type: 
  Country: None (occurrence: None)
  Receive Date: 20120731
  Receipt Date: 20120725
  Transmission Date: 20120928
  Serious: Yes (Hospitalization)
  Sender: FDA-Public Use
  Company Number: US-009507513-2009SP017305

PATIENT

DRUGS (3)
  1. RESTORIL [Concomitant]
     Indication: SLEEP DISORDER THERAPY
     Dosage: 30 MG, PRN
     Dates: start: 20060801
  2. NUVARING [Suspect]
     Indication: CONTRACEPTION
     Dosage: 1 DF, UNK
     Dates: start: 20060401, end: 20061101
  3. TOPROL-XL [Concomitant]
     Indication: HYPERTENSION
     Dosage: 25 MG, QD
     Dates: start: 20060901, end: 20061101

REACTIONS (6)
  - HYPERTENSION [None]
  - DYSFUNCTIONAL UTERINE BLEEDING [None]
  - PELVIC PAIN [None]
  - CEREBRAL VENOUS THROMBOSIS [None]
  - SUBARACHNOID HAEMORRHAGE [None]
  - CHEST PAIN [None]
